FAERS Safety Report 16889048 (Version 1)
Quarter: 2019Q4

REPORT INFORMATION
  Report Type: Spontaneous
  Country: GB (occurrence: GB)
  Receive Date: 20191007
  Receipt Date: 20191007
  Transmission Date: 20200122
  Serious: Yes (Hospitalization, Disabling, Other)
  Sender: FDA-Public Use
  Company Number: GB-TEVA-2019-GB-1117321

PATIENT
  Age: 95 Year
  Sex: Female
  Weight: 77.8 kg

DRUGS (7)
  1. HYDROXOCOBALAMIN [Concomitant]
     Active Substance: HYDROXOCOBALAMIN
  2. FUROSEMIDE. [Concomitant]
     Active Substance: FUROSEMIDE
  3. TRIMETHOPRIM. [Suspect]
     Active Substance: TRIMETHOPRIM
     Indication: URINARY TRACT INFECTION
     Dosage: 400 MILLIGRAM PER DAY
     Route: 048
     Dates: start: 20190828, end: 20190905
  4. LISINOPRIL. [Concomitant]
     Active Substance: LISINOPRIL
  5. RANITIDINE HYDROCHLORIDE. [Concomitant]
     Active Substance: RANITIDINE HYDROCHLORIDE
  6. CYCLIZINE HYDROCHLORIDE [Concomitant]
     Active Substance: CYCLIZINE HYDROCHLORIDE
  7. QUININE SULFATE. [Concomitant]
     Active Substance: QUININE SULFATE

REACTIONS (4)
  - Angle closure glaucoma [Recovering/Resolving]
  - Ocular hyperaemia [Unknown]
  - Vision blurred [Unknown]
  - Eye pain [Unknown]

NARRATIVE: CASE EVENT DATE: 20190828
